FAERS Safety Report 5222611-6 (Version None)
Quarter: 2007Q1

REPORT INFORMATION
  Report Type: 
  Country: None (occurrence: None)
  Receive Date: 20061201
  Receipt Date: 20060713
  Transmission Date: 20070707
  Serious: No
  Sender: FDA-Public Use
  Company Number: 2006PV017553

PATIENT
  Age: 63 Year
  Sex: Female

DRUGS (2)
  1. BYETTA [Suspect]
     Indication: DRUG USE FOR UNKNOWN INDICATION
     Dosage: 5 MCG BID SC
     Route: 058
     Dates: start: 20060713
  2. LANTUS [Concomitant]

REACTIONS (2)
  - ENERGY INCREASED [None]
  - WEIGHT DECREASED [None]
